FAERS Safety Report 20904869 (Version 1)
Quarter: 2022Q2

REPORT INFORMATION
  Report Type: Spontaneous
  Country: US (occurrence: None)
  Receive Date: 20220601
  Receipt Date: 20220601
  Transmission Date: 20220720
  Serious: Yes (unspecified)
  Sender: FDA-Public Use
  Company Number: None

PATIENT
  Sex: Female

DRUGS (2)
  1. AMLODIPINE [Suspect]
     Active Substance: AMLODIPINE BESYLATE
     Dosage: OTHER FREQUENCY : 1 DAY;?
     Route: 048
  2. VERAPAMIL [Suspect]
     Active Substance: VERAPAMIL HYDROCHLORIDE
     Dosage: OTHER FREQUENCY : 1 DAY;?
     Route: 048

REACTIONS (6)
  - Drug ineffective [None]
  - Headache [None]
  - Dizziness [None]
  - Blood pressure increased [None]
  - Cough variant asthma [None]
  - Asthma [None]
